FAERS Safety Report 16736646 (Version 3)
Quarter: 2020Q1

REPORT INFORMATION
  Report Type: Spontaneous
  Country: US (occurrence: US)
  Receive Date: 20190823
  Receipt Date: 20200121
  Transmission Date: 20200409
  Serious: No
  Sender: FDA-Public Use
  Company Number: US-JNJFOC-20190827548

PATIENT
  Sex: Female

DRUGS (1)
  1. NIZORAL [Suspect]
     Active Substance: KETOCONAZOLE
     Indication: INFECTION PARASITIC
     Route: 061
     Dates: start: 2019

REACTIONS (2)
  - Product label issue [Unknown]
  - Drug ineffective [Unknown]
